FAERS Safety Report 5342471-2 (Version None)
Quarter: 2007Q2

REPORT INFORMATION
  Report Type: 
  Country: None (occurrence: None)
  Receive Date: 20070601
  Receipt Date: 20070521
  Transmission Date: 20071010
  Serious: Yes (Disabling, Other)
  Sender: FDA-Public Use
  Company Number: US-PFIZER INC-2007041286

PATIENT
  Sex: Female
  Weight: 49.09 kg

DRUGS (6)
  1. NEURONTIN [Suspect]
  2. CHANTIX [Suspect]
     Indication: SMOKING CESSATION THERAPY
  3. ALL OTHER THERAPEUTIC PRODUCTS [Suspect]
  4. ALBUTEROL [Concomitant]
  5. TRAZODONE HCL [Concomitant]
  6. ALL OTHER THERAPEUTIC PRODUCTS [Concomitant]

REACTIONS (17)
  - BACK DISORDER [None]
  - COUGH [None]
  - DEPRESSION [None]
  - DISABILITY [None]
  - DYSPNOEA [None]
  - FIBROMYALGIA [None]
  - INCREASED UPPER AIRWAY SECRETION [None]
  - INJURY [None]
  - LOWER LIMB FRACTURE [None]
  - MALAISE [None]
  - NAUSEA [None]
  - OSTEOPOROSIS [None]
  - RHINORRHOEA [None]
  - SPINAL DISORDER [None]
  - TOOTH EXTRACTION [None]
  - UNEVALUABLE EVENT [None]
  - VAGINAL HAEMORRHAGE [None]
